FAERS Safety Report 6738969-2 (Version None)
Quarter: 2010Q2

REPORT INFORMATION
  Report Type: 
  Country: None (occurrence: None)
  Receive Date: 20100521
  Receipt Date: 20100506
  Transmission Date: 20101027
  Serious: Yes (Death, Hospitalization)
  Sender: FDA-Public Use
  Company Number: 2010001852

PATIENT
  Age: 78 Year
  Sex: Male

DRUGS (1)
  1. ERLOTINIB (ERLOTINIB HC1) (TABLET) ERLOTINIB HC1 [Suspect]
     Indication: NON-SMALL CELL LUNG CANCER
     Dosage: 150 MG, QD, ORAL
     Route: 048
     Dates: start: 20100324, end: 20100419

REACTIONS (10)
  - ASTHENIA [None]
  - COLLAPSE OF LUNG [None]
  - DECREASED APPETITE [None]
  - DEHYDRATION [None]
  - FATIGUE [None]
  - GASTROINTESTINAL HAEMORRHAGE [None]
  - HYPOPHAGIA [None]
  - SUDDEN DEATH [None]
  - ULCER [None]
  - WEIGHT DECREASED [None]
